FAERS Safety Report 13227903 (Version 7)
Quarter: 2017Q2

REPORT INFORMATION
  Report Type: Report from Study
  Country: None (occurrence: JP)
  Receive Date: 20170213
  Receipt Date: 20170628
  Transmission Date: 20170830
  Serious: Yes (Hospitalization)
  Sender: FDA-Public Use
  Company Number: JP-ABBVIE-17P-087-1871682-00

PATIENT
  Age: 74 Year
  Sex: Female
  Weight: 44 kg

DRUGS (18)
  1. QUETIAPINE FUMARATE. [Concomitant]
     Active Substance: QUETIAPINE FUMARATE
     Route: 048
     Dates: start: 20170425, end: 20170508
  2. DUODOPA [Suspect]
     Active Substance: CARBIDOPA\LEVODOPA
     Dosage: MD: 4.5 ML, CD: 1.7 ML/HR X 14 HR, ED: 1 ML/UNIT X 2
     Route: 050
     Dates: start: 20170228, end: 20170314
  3. MAGNESIUM OXIDE. [Suspect]
     Active Substance: MAGNESIUM OXIDE
     Indication: PRODUCT USED FOR UNKNOWN INDICATION
     Route: 048
     Dates: end: 20170612
  4. PURIFIED SODIUM HYALURONATE [Concomitant]
     Indication: PRODUCT USED FOR UNKNOWN INDICATION
     Dosage: Q.S
     Route: 061
     Dates: start: 20161220
  5. DUODOPA [Suspect]
     Active Substance: CARBIDOPA\LEVODOPA
     Dosage: MD: 4.5 ML, CD: 2.1 ML/HR X 14 HR, ED: 1 ML/UNIT X 2
     Route: 050
     Dates: start: 20170328, end: 20170411
  6. DUODOPA [Suspect]
     Active Substance: CARBIDOPA\LEVODOPA
     Dosage: MD: 4.5 ML, CD: 2.2 ML/HR X 14 HR, ED: 1 ML/UNIT X 2
     Route: 050
     Dates: start: 20170411
  7. QUETIAPINE FUMARATE. [Concomitant]
     Active Substance: QUETIAPINE FUMARATE
     Indication: PRODUCT USED FOR UNKNOWN INDICATION
     Route: 048
     Dates: end: 20170209
  8. DUODOPA [Suspect]
     Active Substance: CARBIDOPA\LEVODOPA
     Indication: PARKINSON^S DISEASE
     Dosage: MD: 4.5 ML, CD: 1.2 ML/HR X 14 HR, ED: 1 ML/UNIT X 2
     Route: 050
     Dates: start: 20161109, end: 20170124
  9. DUODOPA [Suspect]
     Active Substance: CARBIDOPA\LEVODOPA
     Dosage: MD: 4.5 ML, CD: 1.4 ML/HR X 14 HR, ED: 1 ML/UNIT X 2
     Route: 050
     Dates: start: 20170124, end: 20170214
  10. DUODOPA [Suspect]
     Active Substance: CARBIDOPA\LEVODOPA
     Dosage: MD: 4.5 ML, CD: 1.5 ML/HR X 14 HR, ED: 1 ML/UNIT X 2
     Route: 050
     Dates: start: 20170214, end: 20170228
  11. DUODOPA [Suspect]
     Active Substance: CARBIDOPA\LEVODOPA
     Dosage: MD: 4.5 ML, CD: 1.9 ML/HR X 14 HR, ED: 1 ML/UNIT X 2
     Route: 050
     Dates: start: 20170314, end: 20170328
  12. MAGNESIUM OXIDE. [Suspect]
     Active Substance: MAGNESIUM OXIDE
     Route: 065
     Dates: start: 20170613
  13. QUETIAPINE FUMARATE. [Concomitant]
     Active Substance: QUETIAPINE FUMARATE
     Route: 048
     Dates: start: 20170509
  14. QUETIAPINE FUMARATE. [Concomitant]
     Active Substance: QUETIAPINE FUMARATE
     Route: 048
     Dates: start: 20170209, end: 20170227
  15. QUETIAPINE FUMARATE. [Concomitant]
     Active Substance: QUETIAPINE FUMARATE
     Route: 048
     Dates: start: 20170328, end: 20170424
  16. QUETIAPINE FUMARATE. [Concomitant]
     Active Substance: QUETIAPINE FUMARATE
     Route: 048
     Dates: start: 20170321, end: 20170327
  17. QUETIAPINE FUMARATE. [Concomitant]
     Active Substance: QUETIAPINE FUMARATE
     Route: 048
     Dates: start: 20170228, end: 20170320
  18. LORAZEPAM. [Concomitant]
     Active Substance: LORAZEPAM
     Indication: PRODUCT USED FOR UNKNOWN INDICATION
     Route: 048

REACTIONS (6)
  - Device leakage [Recovered/Resolved]
  - Anal incontinence [Recovered/Resolved]
  - Viral upper respiratory tract infection [Recovered/Resolved]
  - Sputum retention [Not Recovered/Not Resolved]
  - Fall [Recovered/Resolved]
  - Cough [Not Recovered/Not Resolved]

NARRATIVE: CASE EVENT DATE: 20170105
